FAERS Safety Report 6167630-0 (Version None)
Quarter: 2009Q2

REPORT INFORMATION
  Report Type: 
  Country: None (occurrence: None)
  Receive Date: 20090424
  Receipt Date: 20070924
  Transmission Date: 20091009
  Serious: Yes (Hospitalization, Other)
  Sender: FDA-Public Use
  Company Number: PHBS2007IN15864

PATIENT
  Age: 21 Year
  Sex: Female

DRUGS (3)
  1. IMATINIB MESYLATE [Suspect]
     Indication: CHRONIC MYELOID LEUKAEMIA
     Dosage: 400 MG/D
     Route: 048
  2. IMATINIB MESYLATE [Suspect]
     Dosage: 6400 MG, ONCE/SINGLE
     Route: 048
  3. IMATINIB MESYLATE [Suspect]
     Route: 048

REACTIONS (11)
  - ABDOMINAL PAIN [None]
  - ALANINE AMINOTRANSFERASE INCREASED [None]
  - ASPARTATE AMINOTRANSFERASE INCREASED [None]
  - DRUG TOXICITY [None]
  - INTENTIONAL OVERDOSE [None]
  - LIP SWELLING [None]
  - NAUSEA [None]
  - NEUTROPHIL COUNT DECREASED [None]
  - PYREXIA [None]
  - SWELLING FACE [None]
  - VOMITING [None]
